FAERS Safety Report 4877640-9 (Version None)
Quarter: 2006Q1

REPORT INFORMATION
  Report Type: 
  Country: None (occurrence: None)
  Receive Date: 20060109
  Receipt Date: 20051221
  Transmission Date: 20060701
  Serious: Yes (Hospitalization)
  Sender: FDA-Public Use
  Company Number: 2006000764

PATIENT
  Age: 56 Year
  Sex: Male

DRUGS (4)
  1. IRINOTECAN HCL [Suspect]
     Indication: GASTRIC CANCER
     Dosage: (150 MG, 1 IN 1 D), INTRAVENOUS
     Route: 042
     Dates: start: 20050217, end: 20050217
  2. TEGAFUR/GIMERACIL/OTERACIL POTASSIUM (TEGAFUR/GIMERACIL/OTERACIL POTAS [Suspect]
     Indication: GASTRIC CANCER
     Dosage: (120MG, 1 IN 1D), ORAL
     Route: 048
     Dates: start: 20050217, end: 20051022
  3. FLUOROURACIL [Concomitant]
  4. TAXOL [Concomitant]

REACTIONS (3)
  - ABDOMINAL PAIN LOWER [None]
  - CONVULSION [None]
  - ILEUS [None]
